FAERS Safety Report 6353881-9 (Version None)
Quarter: 2009Q3

REPORT INFORMATION
  Report Type: 
  Country: None (occurrence: None)
  Receive Date: 20090912
  Receipt Date: 20090622
  Transmission Date: 20100115
  Serious: No
  Sender: FDA-Public Use
  Company Number: US-ABBOTT-08P-163-0479599-00

PATIENT
  Sex: Female
  Weight: 71.732 kg

DRUGS (5)
  1. HUMIRA [Suspect]
     Indication: CROHN'S DISEASE
     Route: 058
     Dates: start: 20081003
  2. HUMIRA [Suspect]
     Route: 058
     Dates: start: 20080919, end: 20080919
  3. HUMIRA [Suspect]
     Route: 058
     Dates: start: 20080904, end: 20080904
  4. PURENTHOL [Concomitant]
     Indication: CROHN'S DISEASE
  5. PREDNISONE [Concomitant]
     Indication: CROHN'S DISEASE

REACTIONS (3)
  - DRUG DELIVERY SYSTEM MALFUNCTION [None]
  - INCORRECT DOSE ADMINISTERED [None]
  - INJECTION SITE HAEMORRHAGE [None]
